FAERS Safety Report 20096682 (Version 1)
Quarter: 2021Q4

REPORT INFORMATION
  Report Type: Report from Study
  Country: US (occurrence: US)
  Receive Date: 20211122
  Receipt Date: 20211122
  Transmission Date: 20220303
  Serious: Yes (Hospitalization, Other)
  Sender: FDA-Public Use
  Company Number: US-BoehringerIngelheim-2021-BI-121085

PATIENT
  Sex: Male

DRUGS (1)
  1. OFEV [Suspect]
     Active Substance: NINTEDANIB
     Indication: Idiopathic pulmonary fibrosis
     Dosage: OFEV 300MG DAILY
     Route: 048
     Dates: start: 20200127

REACTIONS (5)
  - Large intestinal obstruction [Unknown]
  - Dyspnoea [Unknown]
  - Volvulus [Unknown]
  - Post procedural haemorrhage [Unknown]
  - Colectomy [Unknown]
